FAERS Safety Report 20422731 (Version 1)
Quarter: 2022Q1

REPORT INFORMATION
  Report Type: Spontaneous
  Country: FR (occurrence: FR)
  Receive Date: 20220203
  Receipt Date: 20220203
  Transmission Date: 20220423
  Serious: Yes (Life-Threatening, Other)
  Sender: FDA-Public Use
  Company Number: FR-ROCHE-3005465

PATIENT
  Age: 17 Year
  Sex: Male

DRUGS (5)
  1. LYRICA [Suspect]
     Active Substance: PREGABALIN
     Dosage: ABOUT 6 TABLETS PER DAY
     Route: 048
  2. LYRICA [Suspect]
     Active Substance: PREGABALIN
     Dosage: 2100 MG
     Route: 048
     Dates: start: 20211121, end: 20211121
  3. RIVOTRIL [Suspect]
     Active Substance: CLONAZEPAM
     Dosage: 14 MG
     Route: 048
     Dates: start: 20211121, end: 20211121
  4. RIVOTRIL [Suspect]
     Active Substance: CLONAZEPAM
     Dosage: 1 TO 2 TABLETS/TAKE 1 TO 2 TIMES A WEEK
     Route: 048
  5. COCAINE [Suspect]
     Active Substance: COCAINE
     Dosage: UNK
     Route: 065
     Dates: start: 20211121, end: 20211121

REACTIONS (3)
  - Coma [Recovered/Resolved]
  - Drug abuse [Unknown]
  - Altered state of consciousness [Recovered/Resolved]

NARRATIVE: CASE EVENT DATE: 20211121
